FAERS Safety Report 5302115-2 (Version None)
Quarter: 2007Q2

REPORT INFORMATION
  Report Type: 
  Country: None (occurrence: None)
  Receive Date: 20070419
  Receipt Date: 20070410
  Transmission Date: 20071010
  Serious: Yes (Death, Life-Threatening, Hospitalization)
  Sender: FDA-Public Use
  Company Number: GB-GLAXOSMITHKLINE-B0466576A

PATIENT
  Age: 67 Year
  Sex: Female

DRUGS (1)
  1. ACYCLOVIR [Suspect]
     Dosage: 200MG FIVE TIMES PER DAY

REACTIONS (10)
  - ABNORMAL BEHAVIOUR [None]
  - COORDINATION ABNORMAL [None]
  - GAIT DISTURBANCE [None]
  - ISCHAEMIA [None]
  - LOCAL SWELLING [None]
  - NERVOUS SYSTEM DISORDER [None]
  - NEUROTOXICITY [None]
  - SOMNOLENCE [None]
  - SUBDURAL HAEMATOMA [None]
  - VIITH NERVE PARALYSIS [None]
